FAERS Safety Report 25217654 (Version 1)
Quarter: 2025Q2

REPORT INFORMATION
  Report Type: Report from Study
  Country: CN (occurrence: CN)
  Receive Date: 20250420
  Receipt Date: 20250420
  Transmission Date: 20250716
  Serious: Yes (Other)
  Sender: ABBVIE
  Company Number: CN-ABBVIE-6232490

PATIENT

DRUGS (7)
  1. VENETOCLAX [Suspect]
     Active Substance: VENETOCLAX
     Indication: Acute myeloid leukaemia
     Dosage: DAY 1
     Route: 048
  2. VENETOCLAX [Suspect]
     Active Substance: VENETOCLAX
     Indication: Acute myeloid leukaemia
     Dosage: DAY 2
     Route: 048
  3. VENETOCLAX [Suspect]
     Active Substance: VENETOCLAX
     Indication: Acute myeloid leukaemia
     Dosage: DAY 3
     Route: 048
  4. DECITABINE [Suspect]
     Active Substance: DECITABINE
     Indication: Acute myeloid leukaemia
     Dosage: DAY 1 TO 5
     Route: 065
  5. SELINEXOR [Suspect]
     Active Substance: SELINEXOR
     Indication: Myelodysplastic syndrome
     Dosage: DAY 4
     Route: 048
  6. SELINEXOR [Suspect]
     Active Substance: SELINEXOR
     Indication: Myelodysplastic syndrome
     Dosage: DAY 11
     Route: 048
  7. SELINEXOR [Suspect]
     Active Substance: SELINEXOR
     Indication: Myelodysplastic syndrome
     Dosage: DAY 18
     Route: 048

REACTIONS (1)
  - Pancytopenia [Unknown]
